FAERS Safety Report 7779401-X (Version None)
Quarter: 2011Q3

REPORT INFORMATION
  Report Type: 
  Country: None (occurrence: None)
  Receive Date: 20110927
  Receipt Date: 20090130
  Transmission Date: 20111222
  Serious: No
  Sender: FDA-Public Use
  Company Number: 2009BI003399

PATIENT
  Sex: Female

DRUGS (1)
  1. TYSABRI [Suspect]
     Indication: MULTIPLE SCLEROSIS
     Route: 042
     Dates: start: 20080709

REACTIONS (8)
  - GAIT DISTURBANCE [None]
  - DEPRESSED MOOD [None]
  - PERONEAL NERVE PALSY [None]
  - TOOTH FRACTURE [None]
  - FALL [None]
  - STRESS [None]
  - FATIGUE [None]
  - ANXIETY [None]
